FAERS Safety Report 13578122 (Version 1)
Quarter: 2017Q2

REPORT INFORMATION
  Report Type: Spontaneous
  Country: US (occurrence: US)
  Receive Date: 20170524
  Receipt Date: 20170524
  Transmission Date: 20170830
  Serious: Yes (Hospitalization)
  Sender: FDA-Public Use
  Company Number: US-FRESENIUS MEDICAL CARE RENAL THERAPIES GROUP-FMC-1705-000575

PATIENT
  Age: 46 Year
  Sex: Female

DRUGS (7)
  1. RESTORIL [Concomitant]
     Active Substance: TEMAZEPAM
     Route: 048
  2. CARDIZEM [Concomitant]
     Active Substance: DILTIAZEM HYDROCHLORIDE
     Indication: BLOOD PRESSURE MEASUREMENT
     Route: 048
  3. DELFLEX [Suspect]
     Active Substance: CALCIUM CHLORIDE\DEXTROSE\MAGNESIUM CHLORIDE\SODIUM CHLORIDE\SODIUM LACTATE
     Indication: END STAGE RENAL DISEASE
  4. AMLODIPINE [Concomitant]
     Active Substance: AMLODIPINE BESYLATE
     Indication: BLOOD PRESSURE MEASUREMENT
     Route: 048
  5. LASIX [Concomitant]
     Active Substance: FUROSEMIDE
  6. LOSARTAN. [Concomitant]
     Active Substance: LOSARTAN
     Indication: BLOOD PRESSURE MEASUREMENT
     Route: 048
  7. PROAIR HFA [Concomitant]
     Active Substance: ALBUTEROL SULFATE

REACTIONS (1)
  - Pleural effusion [Recovering/Resolving]

NARRATIVE: CASE EVENT DATE: 20170512
